FAERS Safety Report 13194696 (Version 2)
Quarter: 2017Q1

REPORT INFORMATION
  Report Type: Spontaneous
  Country: IL (occurrence: IL)
  Receive Date: 20170207
  Receipt Date: 20170221
  Transmission Date: 20170428
  Serious: Yes (Hospitalization)
  Sender: FDA-Public Use
  Company Number: IL-SA-2017SA017067

PATIENT
  Age: 80 Year
  Sex: Male

DRUGS (9)
  1. CLEXANE [Suspect]
     Active Substance: ENOXAPARIN SODIUM
     Indication: HAEMORRHOID OPERATION
     Route: 065
     Dates: end: 20170206
  2. COUMADIN [Concomitant]
     Active Substance: WARFARIN SODIUM
     Indication: ATRIAL FIBRILLATION
     Route: 065
  3. ELIQUIS [Suspect]
     Active Substance: APIXABAN
     Route: 065
     Dates: start: 20170207
  4. TAMBOCOR [Concomitant]
     Active Substance: FLECAINIDE ACETATE
     Route: 065
  5. LOSARDEX [Concomitant]
     Active Substance: LOSARTAN POTASSIUM
     Route: 065
  6. COUMADIN [Concomitant]
     Active Substance: WARFARIN SODIUM
     Indication: ATRIAL FIBRILLATION
     Route: 065
  7. IKAPRESS [Concomitant]
     Route: 065
  8. FLIXOTIDE [Concomitant]
     Active Substance: FLUTICASONE PROPIONATE
     Route: 065
  9. FERROGRAD FOLIC [Concomitant]
     Route: 065

REACTIONS (7)
  - Paraesthesia [Recovering/Resolving]
  - Product use issue [Unknown]
  - Dizziness [Recovering/Resolving]
  - Procedural haemorrhage [Recovered/Resolved]
  - Injection site haematoma [Recovering/Resolving]
  - Formication [Recovering/Resolving]
  - Haemoglobin decreased [Recovered/Resolved]

NARRATIVE: CASE EVENT DATE: 20170207
